FAERS Safety Report 22006743 (Version 1)
Quarter: 2023Q1

REPORT INFORMATION
  Report Type: Spontaneous
  Country: US (occurrence: US)
  Receive Date: 20230217
  Receipt Date: 20230217
  Transmission Date: 20230418
  Serious: Yes (Hospitalization)
  Sender: FDA-Public Use
  Company Number: US-AMNEAL PHARMACEUTICALS-2023-AMRX-00465

PATIENT
  Sex: Female

DRUGS (1)
  1. RYTARY [Suspect]
     Active Substance: CARBIDOPA\LEVODOPA
     Indication: Product used for unknown indication
     Dosage: 23.75-95MG DOSE :TAKE 1 CAPSULE BY MOUTH THREE TIMES A DAY AT 5AM, 11AM AND 3PM, 36.25-145MG DOSE -
     Route: 048

REACTIONS (1)
  - Adverse event [Unknown]
